FAERS Safety Report 5353423-0 (Version None)
Quarter: 2007Q2

REPORT INFORMATION
  Report Type: 
  Country: None (occurrence: None)
  Receive Date: 20070612
  Receipt Date: 20070530
  Transmission Date: 20071010
  Serious: Yes (Hospitalization, Other)
  Sender: FDA-Public Use
  Company Number: PHMT2007CA01331

PATIENT
  Sex: Female

DRUGS (2)
  1. SIMULECT [Suspect]
     Indication: RENAL TRANSPLANT
  2. THYMOGLOBULIN [Suspect]

REACTIONS (4)
  - COMPLICATIONS OF TRANSPLANTED KIDNEY [None]
  - HYPOTENSION [None]
  - PYREXIA [None]
  - TREMOR [None]
